FAERS Safety Report 24313799 (Version 4)
Quarter: 2024Q4

REPORT INFORMATION
  Report Type: Report from Study
  Country: US (occurrence: US)
  Receive Date: 20240912
  Receipt Date: 20241220
  Transmission Date: 20250115
  Serious: No
  Sender: SUNOVION
  Company Number: US-SUMITOMO PHARMA SWITZERLAND GMBH-2024SPA001757

PATIENT

DRUGS (1)
  1. ORGOVYX [Suspect]
     Active Substance: RELUGOLIX
     Indication: Prostate cancer
     Dosage: 120 MG, QD
     Route: 048
     Dates: start: 20240812

REACTIONS (10)
  - Dyspnoea [Unknown]
  - Blood calcium increased [Unknown]
  - Parathyroid disorder [Unknown]
  - Brain fog [Unknown]
  - Dizziness [Unknown]
  - Blood glucose increased [Unknown]
  - Hot flush [Unknown]
  - Fatigue [Unknown]
  - Headache [Unknown]
  - Incorrect dose administered [Unknown]
